FAERS Safety Report 9825413 (Version 1)
Quarter: 2013Q4

REPORT INFORMATION
  Report Type: Spontaneous
  Country: US (occurrence: None)
  Receive Date: 20131223
  Receipt Date: 20131223
  Transmission Date: 20140711
  Serious: Yes (Other)
  Sender: FDA-Public Use
  Company Number: 219332LEO

PATIENT
  Age: 48 Year
  Sex: Male

DRUGS (1)
  1. PICATO [Suspect]
     Indication: ACTINIC KERATOSIS
     Route: 061
     Dates: start: 20121007

REACTIONS (4)
  - Erythema [None]
  - Burning sensation [None]
  - Drug administered at inappropriate site [None]
  - Papule [None]
